FAERS Safety Report 5347188-6 (Version None)
Quarter: 2007Q2

REPORT INFORMATION
  Report Type: 
  Country: None (occurrence: None)
  Receive Date: 20070604
  Receipt Date: 20070604
  Transmission Date: 20071010
  Serious: Yes (Hospitalization)
  Sender: FDA-Public Use
  Company Number: None

PATIENT
  Sex: Male
  Weight: 145.6 kg

DRUGS (2)
  1. TAXOTERE [Suspect]
     Dosage: 206MG 4/10/07 Q 3WK X 2 IV
     Route: 042
     Dates: start: 20070410
  2. CARBOPLATIN [Suspect]
     Dosage: 1082MG 4/10/07 Q3WK X 2 IV
     Route: 042
     Dates: start: 20070410

REACTIONS (3)
  - COUGH [None]
  - DYSPNOEA [None]
  - RADIATION PNEUMONITIS [None]
